FAERS Safety Report 25229963 (Version 1)
Quarter: 2025Q2

REPORT INFORMATION
  Report Type: Spontaneous
  Country: BR (occurrence: BR)
  Receive Date: 20250423
  Receipt Date: 20250423
  Transmission Date: 20250717
  Serious: Yes (Other)
  Sender: SANDOZ
  Company Number: BR-SANDOZ-SDZ2024BR063185

PATIENT
  Sex: Female

DRUGS (3)
  1. BUDESONIDE\FORMOTEROL FUMARATE [Suspect]
     Active Substance: BUDESONIDE\FORMOTEROL FUMARATE
     Indication: Product used for unknown indication
     Route: 065
  2. BUDESONIDE\FORMOTEROL FUMARATE [Suspect]
     Active Substance: BUDESONIDE\FORMOTEROL FUMARATE
     Indication: Bronchitis
     Dosage: UNK, QW, 12/400
     Route: 065
  3. GINKGO [Suspect]
     Active Substance: GINKGO
     Indication: Product used for unknown indication
     Route: 065

REACTIONS (10)
  - Cerebrovascular accident [Unknown]
  - Cataract [Unknown]
  - Osteoporosis [Unknown]
  - Product availability issue [Unknown]
  - Product substitution issue [Unknown]
  - Dyspnoea [Unknown]
  - Fatigue [Unknown]
  - Therapy interrupted [Unknown]
  - Candida infection [Unknown]
  - Anxiety [Unknown]
